FAERS Safety Report 21572268 (Version 1)
Quarter: 2022Q4

REPORT INFORMATION
  Report Type: Other
  Country: JP (occurrence: None)
  Receive Date: 20221109
  Receipt Date: 20221109
  Transmission Date: 20230112
  Serious: Yes (Other)
  Sender: FDA-Public Use
  Company Number: JP-Merck Healthcare KGaA-9362816

PATIENT
  Age: 9 Decade
  Sex: Female

DRUGS (11)
  1. TEPMETKO [Suspect]
     Active Substance: TEPOTINIB HYDROCHLORIDE
     Indication: Non-small cell lung cancer
     Route: 048
  2. ACETAMINOPHEN [Concomitant]
     Active Substance: ACETAMINOPHEN
     Indication: Musculoskeletal pain
     Route: 048
  3. ACETAMINOPHEN [Concomitant]
     Active Substance: ACETAMINOPHEN
     Indication: Pain in extremity
  4. PREGABALIN [Concomitant]
     Active Substance: PREGABALIN
     Indication: Musculoskeletal pain
     Route: 048
  5. PREGABALIN [Concomitant]
     Active Substance: PREGABALIN
     Indication: Pain in extremity
  6. OXYCODONE [Concomitant]
     Active Substance: OXYCODONE
     Indication: Musculoskeletal pain
     Dosage: SLOW-RELEASE CAPSULES
     Route: 048
  7. OXYCODONE [Concomitant]
     Active Substance: OXYCODONE
     Indication: Pain in extremity
     Dosage: POWDER AT 2.5 MG/DOSE
  8. FENTANYL [Concomitant]
     Active Substance: FENTANYL
     Indication: Musculoskeletal pain
     Dosage: ADHESIVE SKIN PATCH
  9. FENTANYL [Concomitant]
     Active Substance: FENTANYL
     Indication: Pain in extremity
  10. DICLOFENAC [Concomitant]
     Active Substance: DICLOFENAC
     Indication: Musculoskeletal pain
     Dosage: ADHESIVE SKIN PATCH
  11. DICLOFENAC [Concomitant]
     Active Substance: DICLOFENAC
     Indication: Pain in extremity

REACTIONS (3)
  - Renal impairment [Unknown]
  - Somnolence [Recovering/Resolving]
  - Physical deconditioning [Unknown]
